FAERS Safety Report 25716984 (Version 1)
Quarter: 2025Q3

REPORT INFORMATION
  Report Type: Spontaneous
  Country: US (occurrence: None)
  Receive Date: 20250822
  Receipt Date: 20250822
  Transmission Date: 20251021
  Serious: No
  Sender: FDA-CTU
  Company Number: None

PATIENT
  Age: 83 Year
  Sex: Male

DRUGS (4)
  1. LENALIDOMIDE [Suspect]
     Active Substance: LENALIDOMIDE
     Indication: Plasma cell myeloma
     Dosage: FREQUENCY : DAILY;?
     Route: 048
     Dates: start: 20250725
  2. ISATUXIMAB [Suspect]
     Active Substance: ISATUXIMAB
  3. BORTEZOMIB [Suspect]
     Active Substance: BORTEZOMIB
  4. DEXAMETHASONE [Suspect]
     Active Substance: DEXAMETHASONE

REACTIONS (7)
  - Acute kidney injury [None]
  - Fatigue [None]
  - Dizziness [None]
  - Nausea [None]
  - Diarrhoea [None]
  - Decreased appetite [None]
  - Platelet count decreased [None]

NARRATIVE: CASE EVENT DATE: 20250809
